FAERS Safety Report 23398394 (Version 1)
Quarter: 2024Q1

REPORT INFORMATION
  Report Type: Spontaneous
  Country: US (occurrence: None)
  Receive Date: 20240112
  Receipt Date: 20240112
  Transmission Date: 20240410
  Serious: No
  Sender: FDA-Public Use
  Company Number: None

PATIENT
  Age: 15 Year
  Sex: Male
  Weight: 72 kg

DRUGS (2)
  1. ZOLOFT [Suspect]
     Active Substance: SERTRALINE HYDROCHLORIDE
     Indication: Anxiety
     Dates: start: 20180815, end: 20180820
  2. ZOLOFT [Suspect]
     Active Substance: SERTRALINE HYDROCHLORIDE
     Indication: Depression

REACTIONS (9)
  - Anorgasmia [None]
  - Memory impairment [None]
  - Thirst decreased [None]
  - Decreased appetite [None]
  - Insomnia [None]
  - Ageusia [None]
  - Anosmia [None]
  - Emotional poverty [None]
  - Cognitive disorder [None]

NARRATIVE: CASE EVENT DATE: 20180815
